FAERS Safety Report 10060973 (Version 2)
Quarter: 2014Q2

REPORT INFORMATION
  Report Type: Report from Study
  Country: US (occurrence: US)
  Receive Date: 20140405
  Receipt Date: 20140405
  Transmission Date: 20141212
  Serious: Yes (Other)
  Sender: FDA-Public Use
  Company Number: US-ROCHE-1279042

PATIENT
  Age: 57 Year
  Sex: Male
  Weight: 83.99 kg

DRUGS (3)
  1. AVASTIN [Suspect]
     Indication: NON-SMALL CELL LUNG CANCER
     Route: 042
     Dates: start: 20130826
  2. CISPLATIN [Suspect]
     Indication: NON-SMALL CELL LUNG CANCER
     Route: 042
     Dates: start: 20130826
  3. ALIMTA [Concomitant]
     Indication: NON-SMALL CELL LUNG CANCER
     Route: 042
     Dates: start: 20130826

REACTIONS (7)
  - Renal disorder [Not Recovered/Not Resolved]
  - Haemoptysis [Not Recovered/Not Resolved]
  - Breath odour [Not Recovered/Not Resolved]
  - Skin odour abnormal [Not Recovered/Not Resolved]
  - Infection [Not Recovered/Not Resolved]
  - Asthenia [Not Recovered/Not Resolved]
  - Weight increased [Not Recovered/Not Resolved]
